FAERS Safety Report 4282713-8 (Version None)
Quarter: 2004Q1

REPORT INFORMATION
  Report Type: 
  Country: None (occurrence: None)
  Receive Date: 20040130
  Receipt Date: 20030331
  Transmission Date: 20041129
  Serious: No
  Sender: FDA-Public Use
  Company Number: US-BRISTOL-MYERS SQUIBB COMPANY-12226585

PATIENT
  Age: 62 Year
  Sex: Male
  Weight: 107 kg

DRUGS (5)
  1. SERZONE [Suspect]
     Indication: DEPRESSION
     Route: 048
     Dates: start: 20030327
  2. COUMADIN [Concomitant]
  3. XANAX [Concomitant]
  4. VERAPAMIL [Concomitant]
  5. HYDROCHLOROTHIAZIDE [Concomitant]

REACTIONS (2)
  - MYALGIA [None]
  - PHARYNGOLARYNGEAL PAIN [None]
